FAERS Safety Report 5100142-1 (Version None)
Quarter: 2006Q3

REPORT INFORMATION
  Report Type: 
  Country: None (occurrence: None)
  Receive Date: 20060731
  Receipt Date: 20060217
  Transmission Date: 20061208
  Serious: Yes (Other)
  Sender: FDA-Public Use
  Company Number: US-JNJFOC-20040808300

PATIENT
  Age: 40 Year
  Sex: Female

DRUGS (13)
  1. RISPERDAL [Suspect]
     Indication: SCHIZOPHRENIA
     Dosage: SEE IMAGE
     Route: 048
     Dates: start: 20010901, end: 20010901
  2. RISPERDAL [Suspect]
     Indication: SCHIZOPHRENIA
     Dosage: SEE IMAGE
     Route: 048
     Dates: start: 20010901, end: 20040601
  3. RISPERDAL [Suspect]
     Indication: SCHIZOPHRENIA
     Dosage: SEE IMAGE
     Route: 048
     Dates: end: 20050101
  4. RISPERDAL [Suspect]
     Indication: SCHIZOPHRENIA
     Dosage: SEE IMAGE
     Route: 048
     Dates: start: 20050830
  5. RISPERDAL [Suspect]
     Indication: SCHIZOPHRENIA
     Dosage: 50 MG, INTRA-MUSCULAR
     Route: 030
     Dates: start: 20050830
  6. RISPERDAL [Suspect]
     Indication: SCHIZOPHRENIA, PARANOID TYPE
     Dosage: 50 MG, INTRA-MUSCULAR
     Route: 030
     Dates: start: 20050830
  7. PRINIVIL [Concomitant]
  8. PREVACID [Concomitant]
  9. VISTARIL (HYDROXYZOLE)UNSPECIFIED [Concomitant]
  10. NEXIUM (ESOMEPRAZOLE) UNSPECIFIED [Concomitant]
  11. ACCUPRIL (QUINAPRIL HYDROCHLORIDE) UNSPECIFIED [Concomitant]
  12. BANZOTROPINE (BENZATROPINE MESILATE) UNSPECIFIED [Concomitant]
  13. METOCLOPRAMIDE (METOCLOPRAMIDE) UNSPECIFIED [Concomitant]

REACTIONS (19)
  - ANXIETY [None]
  - BLOOD CHOLESTEROL INCREASED [None]
  - BLOOD TRIGLYCERIDES INCREASED [None]
  - DIZZINESS [None]
  - EAR DISCOMFORT [None]
  - EMOTIONAL DISTRESS [None]
  - GASTRIC DISORDER [None]
  - GASTROINTESTINAL DISORDER [None]
  - HERPES SIMPLEX [None]
  - HYPERTENSION [None]
  - HYPOGLYCAEMIA [None]
  - INSULIN-REQUIRING TYPE II DIABETES MELLITUS [None]
  - PAIN [None]
  - PANCREATITIS [None]
  - SWELLING [None]
  - TENDONITIS [None]
  - TRANSIENT ISCHAEMIC ATTACK [None]
  - URINARY TRACT INFECTION [None]
  - VERTIGO [None]
